FAERS Safety Report 9119357 (Version 1)
Quarter: 2013Q1

REPORT INFORMATION
  Report Type: Report from Study
  Country: US (occurrence: US)
  Receive Date: 20130207
  Receipt Date: 20130207
  Transmission Date: 20140127
  Serious: Yes (Hospitalization)
  Sender: FDA-Public Use
  Company Number: US-ABBOTT-13P-163-1044602-00

PATIENT
  Sex: Female

DRUGS (2)
  1. HUMIRA [Suspect]
     Indication: CROHN^S DISEASE
     Route: 058
     Dates: start: 20111104
  2. PREDNISONE [Concomitant]
     Indication: PRODUCT USED FOR UNKNOWN INDICATION

REACTIONS (9)
  - Gastrointestinal haemorrhage [Recovered/Resolved]
  - Gastrointestinal inflammation [Recovered/Resolved]
  - Loss of consciousness [Unknown]
  - Amnesia [Unknown]
  - Fatigue [Unknown]
  - Speech disorder [Unknown]
  - Feeling hot [Unknown]
  - Off label use [Unknown]
  - Crohn^s disease [Recovered/Resolved]
